FAERS Safety Report 10373927 (Version 1)
Quarter: 2014Q1

REPORT INFORMATION
  Report Type: Spontaneous
  Country: US (occurrence: None)
  Receive Date: 20140306
  Receipt Date: 20140306
  Transmission Date: 20141002
  Serious: Yes (Disabling, Other)
  Sender: FDA-Public Use
  Company Number: 163-21880-13012342

PATIENT
  Age: 69 Year
  Sex: Female

DRUGS (2)
  1. REVLIMID [Suspect]
     Indication: AMYLOIDOSIS
     Dosage: 10 MG, 21 IN 28 D, PO
     Route: 048
     Dates: start: 20121203
  2. DECADRON (DEXAMETHASONE) (UNKNOWN) [Concomitant]

REACTIONS (1)
  - Renal failure chronic [None]
